FAERS Safety Report 9162766 (Version 1)
Quarter: 2013Q1

REPORT INFORMATION
  Report Type: Spontaneous
  Country: US (occurrence: None)
  Receive Date: 20130313
  Receipt Date: 20130313
  Transmission Date: 20140127
  Serious: Yes (Other)
  Sender: FDA-Public Use
  Company Number: None

PATIENT
  Age: 75 Year
  Sex: Female
  Weight: 67.13 kg

DRUGS (1)
  1. BRILINTA [Suspect]
     Indication: PLATELET AGGREGATION INHIBITION
     Dosage: STARTED AFTER STENTS
     Dates: start: 20130115

REACTIONS (1)
  - Product dosage form issue [None]
